FAERS Safety Report 7112251-6 (Version None)
Quarter: 2010Q4

REPORT INFORMATION
  Report Type: 
  Country: None (occurrence: None)
  Receive Date: 20101119
  Receipt Date: 20100618
  Transmission Date: 20110411
  Serious: No
  Sender: FDA-Public Use
  Company Number: A0857082A

PATIENT
  Age: 78 Year
  Sex: Male

DRUGS (3)
  1. AVODART [Suspect]
     Indication: BENIGN PROSTATIC HYPERPLASIA
     Dosage: .5MG PER DAY
     Route: 048
     Dates: start: 20060101, end: 20100331
  2. GLIPIZIDE [Concomitant]
  3. INOSINE [Concomitant]

REACTIONS (1)
  - RASH MACULAR [None]
